FAERS Safety Report 7664241-2 (Version None)
Quarter: 2011Q3

REPORT INFORMATION
  Report Type: 
  Country: None (occurrence: None)
  Receive Date: 20110806
  Receipt Date: 20110112
  Transmission Date: 20111222
  Serious: No
  Sender: FDA-Public Use
  Company Number: US-ABBOTT-11P-163-0697437-00

PATIENT
  Sex: Male
  Weight: 82.628 kg

DRUGS (6)
  1. NIASPAN [Suspect]
     Dates: start: 20100201
  2. NIASPAN [Suspect]
     Indication: BLOOD CHOLESTEROL INCREASED
     Dates: start: 20100201
  3. NIASPAN [Suspect]
     Dates: start: 20090801, end: 20090901
  4. PRILOSEC [Concomitant]
     Indication: GASTROOESOPHAGEAL REFLUX DISEASE
  5. LOVAZA [Concomitant]
     Indication: BLOOD CHOLESTEROL INCREASED
  6. NIASPAN [Suspect]
     Dates: start: 20091001, end: 20100101

REACTIONS (1)
  - FLUSHING [None]
